FAERS Safety Report 10175201 (Version 1)
Quarter: 2014Q2

REPORT INFORMATION
  Report Type: Spontaneous
  Country: US (occurrence: US)
  Receive Date: 20140515
  Receipt Date: 20140515
  Transmission Date: 20141212
  Serious: No
  Sender: FDA-Public Use
  Company Number: US-VIVUS-2014V1000092

PATIENT
  Age: 67 Year
  Sex: Female
  Weight: 89.89 kg

DRUGS (17)
  1. QSYMIA 7.5MG/46MG [Suspect]
     Indication: WEIGHT DECREASED
     Route: 048
     Dates: end: 201302
  2. QSYMIA 7.5MG/46MG [Suspect]
     Route: 048
     Dates: end: 201312
  3. QSYMIA 3.75MG/23MG [Suspect]
     Indication: WEIGHT DECREASED
     Route: 048
     Dates: start: 201211
  4. QSYMIA 3.75MG/23MG [Suspect]
     Route: 048
     Dates: start: 201306
  5. LYRICA [Concomitant]
     Indication: NEUROPATHY PERIPHERAL
     Route: 048
  6. FLAX SEED OIL [Concomitant]
     Indication: SUPPLEMENTATION THERAPY
     Route: 048
  7. FLAX SEED OIL [Concomitant]
     Indication: BLOOD CHOLESTEROL INCREASED
  8. ZOLEDRONIC ACID (RECLAST) [Concomitant]
     Indication: OSTEOPENIA
  9. WELLBUTRIN [Concomitant]
     Indication: ANXIETY
     Route: 048
  10. FLEXERIL [Concomitant]
     Indication: INTERVERTEBRAL DISC PROTRUSION
  11. FLEXERIL [Concomitant]
     Indication: PAIN
  12. LISINOPRIL [Concomitant]
     Indication: HYPERTENSION
     Dosage: 10MG/12.5MG
     Route: 048
  13. OMEPRAZOLE [Concomitant]
     Indication: GASTROOESOPHAGEAL REFLUX DISEASE
     Route: 048
  14. SIMVASTATIN [Concomitant]
     Indication: BLOOD CHOLESTEROL INCREASED
     Route: 048
  15. OSTEOFLEX TRIPLE DOSE [Concomitant]
     Indication: ARTHRITIS
     Route: 048
  16. CHEWABLE CALCIUM WITH VITAMIN D3 [Concomitant]
     Indication: SUPPLEMENTATION THERAPY
     Route: 048
  17. ASPIRIN [Concomitant]
     Indication: PROPHYLAXIS
     Route: 048

REACTIONS (1)
  - Hypoaesthesia [Not Recovered/Not Resolved]
